FAERS Safety Report 5509355-8 (Version None)
Quarter: 2007Q4

REPORT INFORMATION
  Report Type: 
  Country: None (occurrence: None)
  Receive Date: 20071107
  Receipt Date: 20071026
  Transmission Date: 20080405
  Serious: Yes (Life-Threatening, Other)
  Sender: FDA-Public Use
  Company Number: GB-PFIZER INC-2007091127

PATIENT
  Sex: Female

DRUGS (1)
  1. SUTENT [Suspect]

REACTIONS (9)
  - ABASIA [None]
  - ASTHENIA [None]
  - CIRCULATORY COLLAPSE [None]
  - CONVULSION [None]
  - HYPERTENSION [None]
  - LOSS OF CONSCIOUSNESS [None]
  - MALAISE [None]
  - THROMBOSIS [None]
  - TREMOR [None]
